FAERS Safety Report 24604255 (Version 1)
Quarter: 2024Q4

REPORT INFORMATION
  Report Type: Spontaneous
  Country: US (occurrence: US)
  Receive Date: 20241111
  Receipt Date: 20241111
  Transmission Date: 20250114
  Serious: No
  Sender: ABBVIE
  Company Number: US-ABBVIE-5997276

PATIENT

DRUGS (1)
  1. RINVOQ [Suspect]
     Active Substance: UPADACITINIB
     Indication: Product used for unknown indication
     Route: 048

REACTIONS (8)
  - Anxiety [Unknown]
  - Crohn^s disease [Unknown]
  - Major depression [Unknown]
  - Pain [Unknown]
  - Fatigue [Unknown]
  - Fatigue [Unknown]
  - Feeling abnormal [Unknown]
  - Mental impairment [Unknown]
